FAERS Safety Report 9124979 (Version 1)
Quarter: 2013Q1

REPORT INFORMATION
  Report Type: Spontaneous
  Country: US (occurrence: US)
  Receive Date: 20130121
  Receipt Date: 20130121
  Transmission Date: 20140127
  Serious: No
  Sender: FDA-Public Use
  Company Number: US-009507513-1301USA007400

PATIENT
  Age: 53 Year
  Sex: Male
  Weight: 77.98 kg

DRUGS (3)
  1. VICTRELIS [Suspect]
     Dosage: 800 MG, TID
     Route: 048
  2. PEGASYS [Suspect]
     Dosage: PROCLICK
  3. RIBASPHERE [Suspect]

REACTIONS (1)
  - Platelet count decreased [Unknown]
